FAERS Safety Report 5775107-7 (Version None)
Quarter: 2008Q2

REPORT INFORMATION
  Report Type: 
  Country: None (occurrence: None)
  Receive Date: 20080616
  Receipt Date: 20080609
  Transmission Date: 20081010
  Serious: Yes (Life-Threatening)
  Sender: FDA-Public Use
  Company Number: APP200800491

PATIENT
  Age: 44 Year
  Sex: Male
  Weight: 83.4 kg

DRUGS (7)
  1. HEPARIN SODIUM INJECTION [Suspect]
     Indication: CARDIOPULMONARY BYPASS
     Dosage: SEE IMAGE
     Route: 040
     Dates: start: 20080610, end: 20080610
  2. HEPARIN SODIUM INJECTION [Suspect]
     Indication: CARDIOPULMONARY BYPASS
     Dosage: SEE IMAGE
     Route: 040
     Dates: start: 20080610, end: 20080610
  3. HEPARIN SODIUM INJECTION [Suspect]
     Indication: CARDIOPULMONARY BYPASS
     Dosage: SEE IMAGE
     Route: 040
     Dates: start: 20080610, end: 20080610
  4. HEPARIN SODIUM INJECTION [Suspect]
     Indication: CARDIOPULMONARY BYPASS
     Dosage: SEE IMAGE
     Route: 040
     Dates: start: 20080610, end: 20080610
  5. HEPARIN SODIUM INJECTION [Suspect]
     Indication: CARDIOPULMONARY BYPASS
     Dosage: SEE IMAGE
     Route: 040
     Dates: start: 20080610, end: 20080610
  6. HEPARIN SODIUM INJECTION [Suspect]
  7. HEPARIN SODIUM INJECTION [Suspect]

REACTIONS (2)
  - EMBOLISM [None]
  - HEPARIN RESISTANCE [None]
